FAERS Safety Report 4347483-3 (Version None)
Quarter: 2004Q2

REPORT INFORMATION
  Report Type: 
  Country: None (occurrence: None)
  Receive Date: 20040421
  Receipt Date: 20040317
  Transmission Date: 20050107
  Serious: Yes (Other)
  Sender: FDA-Public Use
  Company Number: 2004019191

PATIENT
  Sex: Female
  Weight: 81.6475 kg

DRUGS (8)
  1. RELPAX [Suspect]
     Indication: MIGRAINE
     Dosage: (PRN), ORAL
     Route: 048
     Dates: start: 20040301
  2. CELEBREX [Suspect]
     Indication: ARTHRITIS
     Dosage: ORAL
     Route: 048
     Dates: start: 20040310
  3. CRESTOR (ROSUVASTATIN) [Concomitant]
  4. VALTREX [Concomitant]
  5. MENEST (ESTROGENS ESTERIFIED, ESTROGENS CONJUGATED) [Concomitant]
  6. PROMETRIUM [Concomitant]
  7. BABY ASPIRIN (ACETYLSALICYCLIC ACID) [Concomitant]
  8. VITAMIN (VITAMINS) [Concomitant]

REACTIONS (6)
  - CAPILLARY DISORDER [None]
  - DRUG INEFFECTIVE [None]
  - FEELING COLD [None]
  - FLUSHING [None]
  - PHOTOSENSITIVITY REACTION [None]
  - SKIN DISCOLOURATION [None]
